FAERS Safety Report 10391986 (Version 1)
Quarter: 2014Q3

REPORT INFORMATION
  Report Type: Spontaneous
  Country: DE (occurrence: DE)
  Receive Date: 20140819
  Receipt Date: 20140819
  Transmission Date: 20150326
  Serious: Yes (Other)
  Sender: FDA-Public Use
  Company Number: PHHY2014DE099829

PATIENT
  Sex: Female
  Weight: 66 kg

DRUGS (3)
  1. CO-DIOVAN [Suspect]
     Active Substance: HYDROCHLOROTHIAZIDE\VALSARTAN
     Dosage: 0.5 DF, UNK (DIVIDED TABLET)
  2. CO-DIOVAN [Suspect]
     Active Substance: HYDROCHLOROTHIAZIDE\VALSARTAN
     Indication: HYPERTENSION
     Dosage: 1 DF, QD (VALS 80 MG, HCTZ 12.5 MG)
     Route: 048
  3. TEBONIN [Concomitant]
     Indication: NERVOUS SYSTEM DISORDER
     Dosage: 0.5 DF, BID (240 MG)
     Route: 048

REACTIONS (2)
  - Wrong technique in drug usage process [Unknown]
  - Thrombosis [Recovering/Resolving]

NARRATIVE: CASE EVENT DATE: 2012
